FAERS Safety Report 22285165 (Version 1)
Quarter: 2023Q2

REPORT INFORMATION
  Report Type: Spontaneous
  Country: US (occurrence: None)
  Receive Date: 20230503
  Receipt Date: 20230503
  Transmission Date: 20230722
  Serious: Yes (Hospitalization)
  Sender: FDA-Public Use
  Company Number: None

PATIENT
  Age: 73 Year
  Sex: Female

DRUGS (1)
  1. STIVARGA [Suspect]
     Active Substance: REGORAFENIB
     Indication: Colon cancer
     Route: 048
     Dates: start: 20230203

REACTIONS (4)
  - Fall [None]
  - Diarrhoea [None]
  - Neoplasm skin [None]
  - Tumour excision [None]

NARRATIVE: CASE EVENT DATE: 20230420
